FAERS Safety Report 8460347-9 (Version None)
Quarter: 2012Q2

REPORT INFORMATION
  Report Type: 
  Country: None (occurrence: None)
  Receive Date: 20120323
  Receipt Date: 20110923
  Transmission Date: 20120825
  Serious: Yes (Other)
  Sender: FDA-Public Use
  Company Number: 163-21880-11093259

PATIENT
  Age: 58 Year
  Sex: Female

DRUGS (1)
  1. REVLIMID [Suspect]
     Indication: MYELOFIBROSIS
     Dosage: 10 MG, DAILY ON DAYS 1-21, OFF 1 WEEK, PO
     Route: 048
     Dates: start: 20110427, end: 20110101

REACTIONS (1)
  - THROMBOSIS [None]
